FAERS Safety Report 7674592-3 (Version None)
Quarter: 2011Q3

REPORT INFORMATION
  Report Type: 
  Country: None (occurrence: None)
  Receive Date: 20110810
  Receipt Date: 20110503
  Transmission Date: 20111222
  Serious: Yes (Disabling)
  Sender: FDA-Public Use
  Company Number: FR-PFIZER INC-2008033889

PATIENT
  Sex: Male

DRUGS (12)
  1. NEURONTIN [Suspect]
     Indication: TRIGEMINAL NEURALGIA
     Dosage: UNK
     Dates: start: 20060101, end: 20060623
  2. INVIRASE [Suspect]
     Indication: ACQUIRED IMMUNODEFICIENCY SYNDROME
     Dates: start: 20060623
  3. LYRICA [Suspect]
     Indication: TRIGEMINAL NEURALGIA
     Dosage: 75 MG, 1X/DAY
     Route: 048
     Dates: start: 20060621, end: 20060624
  4. NORVIR [Suspect]
     Dates: start: 20040417
  5. LYRICA [Suspect]
     Dosage: 150 MG/DAY
     Dates: start: 20060625, end: 20060702
  6. ZOPICLONE [Concomitant]
  7. RETROVIR [Suspect]
     Indication: ACQUIRED IMMUNODEFICIENCY SYNDROME
     Dates: start: 20060623
  8. BACTRIM [Suspect]
     Dates: start: 19981027
  9. COMBIVIR [Suspect]
     Dates: start: 20050928, end: 20060623
  10. VIREAD [Suspect]
     Indication: ACQUIRED IMMUNODEFICIENCY SYNDROME
     Dates: start: 20060623
  11. FOSAMPRENAVIR [Suspect]
     Dates: start: 20050329, end: 20060623
  12. LYRICA [Suspect]
     Dosage: 525 MG.DAY
     Dates: start: 20060703, end: 20060713

REACTIONS (1)
  - OPTIC NEURITIS [None]
